FAERS Safety Report 18020716 (Version 1)
Quarter: 2020Q3

REPORT INFORMATION
  Report Type: Spontaneous
  Country: BE (occurrence: BE)
  Receive Date: 20200714
  Receipt Date: 20200714
  Transmission Date: 20201103
  Serious: Yes (Disabling)
  Sender: FDA-Public Use
  Company Number: BE-HORIZON-VIM-0120-2020

PATIENT
  Age: 88 Year
  Sex: Male
  Weight: 90 kg

DRUGS (6)
  1. VIMOVO [Suspect]
     Active Substance: ESOMEPRAZOLE MAGNESIUM\NAPROXEN
     Indication: OSTEOPOROSIS
     Route: 048
     Dates: start: 20200401, end: 20200625
  2. BEFACT FORTE [CYANOCOBALAMIN\PYRIDOXINE\RIBOFLAVIN\THIAMINE] [Suspect]
     Active Substance: CYANOCOBALAMIN\PYRIDOXINE\RIBOFLAVIN\THIAMINE
     Dosage: BEFACT FORTE IS TAKEN ALTERNATING WITH TRIBVIT.
     Route: 065
  3. TRIBVIT [Concomitant]
     Active Substance: CYANOCOBALAMIN\FOLIC ACID\PYRIDOXINE HYDROCHLORIDE
     Dosage: TRIBVIT IS TAKEN ALTERNATING WITH BEFACT FORTE.
     Route: 065
  4. TAMSULOSIN [Concomitant]
     Active Substance: TAMSULOSIN
  5. LISINOPRIL. [Concomitant]
     Active Substance: LISINOPRIL
  6. ASAFLOW [Concomitant]
     Active Substance: ASPIRIN
     Dosage: 80 MG, UNKNOWN DOSE
     Route: 065

REACTIONS (5)
  - Scrotal exfoliation [Not Recovered/Not Resolved]
  - Urine odour abnormal [Not Recovered/Not Resolved]
  - Dizziness [Not Recovered/Not Resolved]
  - Pruritus [Not Recovered/Not Resolved]
  - Chromaturia [Not Recovered/Not Resolved]

NARRATIVE: CASE EVENT DATE: 20200401
